FAERS Safety Report 6087402-5 (Version None)
Quarter: 2009Q1

REPORT INFORMATION
  Report Type: 
  Country: None (occurrence: None)
  Receive Date: 20090219
  Receipt Date: 20090219
  Transmission Date: 20090719
  Serious: Yes (Other)
  Sender: FDA-Public Use
  Company Number: None

PATIENT
  Age: 82 Year
  Sex: Male
  Weight: 85.2762 kg

DRUGS (2)
  1. GLYBURIDE [Suspect]
     Indication: DIABETES MELLITUS
     Dosage: 5 MG BID BID
     Dates: start: 20070727
  2. GLYBURIDE [Suspect]
     Indication: DIABETES MELLITUS
     Dosage: 5MG BID BID
     Dates: start: 20070821

REACTIONS (2)
  - DIABETES MELLITUS INADEQUATE CONTROL [None]
  - THERAPEUTIC RESPONSE UNEXPECTED WITH DRUG SUBSTITUTION [None]
